FAERS Safety Report 9455901 (Version 2)
Quarter: 2014Q2

REPORT INFORMATION
  Report Type: Spontaneous
  Country: US (occurrence: US)
  Receive Date: 20130813
  Receipt Date: 20140610
  Transmission Date: 20141212
  Serious: Yes (Other)
  Sender: FDA-Public Use
  Company Number: US-PFIZER INC-2013231743

PATIENT
  Age: 66 Year
  Sex: Female

DRUGS (4)
  1. LIPITOR [Suspect]
     Indication: CARDIOVASCULAR EVENT PROPHYLAXIS
     Dosage: 10 MG, DAILY
     Route: 048
     Dates: start: 20041008, end: 20090113
  2. LIPITOR [Suspect]
     Indication: BLOOD CHOLESTEROL INCREASED
  3. LIPITOR [Suspect]
     Indication: BLOOD TRIGLYCERIDES INCREASED
  4. ATORVASTATIN CALCIUM [Suspect]
     Indication: BLOOD CHOLESTEROL ABNORMAL
     Dosage: 10 MG, DAILY
     Dates: start: 20090417

REACTIONS (1)
  - Type 2 diabetes mellitus [Unknown]
